FAERS Safety Report 12114898 (Version 1)
Quarter: 2016Q1

REPORT INFORMATION
  Report Type: Spontaneous
  Country: MX (occurrence: MX)
  Receive Date: 20160225
  Receipt Date: 20160225
  Transmission Date: 20160526
  Serious: Yes (Death, Life-Threatening)
  Sender: FDA-Public Use
  Company Number: MX-PFIZER INC-2016110666

PATIENT
  Age: 75 Year
  Sex: Female

DRUGS (3)
  1. ASPIRINA [Concomitant]
     Active Substance: ASPIRIN
  2. DICLOFENAC [Concomitant]
     Active Substance: DICLOFENAC
  3. IGEF (CELECOXIB) [Suspect]
     Active Substance: CELECOXIB
     Indication: ARTHRALGIA
     Route: 048

REACTIONS (3)
  - Pruritus [Fatal]
  - Anxiety [Fatal]
  - Apnoea [Fatal]

NARRATIVE: CASE EVENT DATE: 20160218
